FAERS Safety Report 6676745-X (Version None)
Quarter: 2010Q2

REPORT INFORMATION
  Report Type: 
  Country: None (occurrence: None)
  Receive Date: 20100412
  Receipt Date: 20100330
  Transmission Date: 20101027
  Serious: Yes (Hospitalization)
  Sender: FDA-Public Use
  Company Number: US-ROCHE-689389

PATIENT
  Sex: Female
  Weight: 75.8 kg

DRUGS (13)
  1. BEVACIZUMAB [Suspect]
     Route: 042
     Dates: start: 20100216
  2. CARBOPLATIN [Suspect]
     Indication: ENDOMETRIAL CANCER
     Dosage: DOSE: 5 AUC, CYCLE1, DAY 1, FREQUENCY: Q21 DAYS X 6CYCLES
     Route: 042
     Dates: start: 20100216
  3. PACLITAXEL [Suspect]
     Indication: ENDOMETRIAL CANCER
     Dosage: CYCLE1, DAY 1, FREQUENCY: Q21 DAYS X 6C
     Route: 042
     Dates: start: 20100216
  4. CYMBALTA [Concomitant]
     Dosage: FREQUENCY: DAILY
  5. HYDROCHLOROTHIAZIDE [Concomitant]
  6. PRILOSEC [Concomitant]
  7. FOSAMAX [Concomitant]
     Dosage: 35 MG WEEKLY
  8. RESTASIS [Concomitant]
     Dosage: FREQUENCY: DAILY
     Route: 047
  9. MOTRIN [Concomitant]
  10. VIT. D [Concomitant]
  11. ATIVAN [Concomitant]
     Dosage: 1 MG PRN
  12. REGLAN [Concomitant]
     Dosage: FOR 3 DAYS AFTER CHEMO, THEREAFTER PRN
  13. DECADRON [Concomitant]
     Dosage: FOR 3 DAYS BEGIN THE DAY AFTER CHEMO

REACTIONS (6)
  - ARTHRALGIA [None]
  - ASTHENIA [None]
  - CHILLS [None]
  - PAIN [None]
  - PYREXIA [None]
  - URINARY TRACT INFECTION [None]
